FAERS Safety Report 5009172-1 (Version None)
Quarter: 2006Q2

REPORT INFORMATION
  Report Type: 
  Country: None (occurrence: None)
  Receive Date: 20060519
  Receipt Date: 20060512
  Transmission Date: 20061013
  Serious: Yes (Disabling)
  Sender: FDA-Public Use
  Company Number: 2005-09-1524

PATIENT
  Age: 57 Year
  Sex: Female

DRUGS (2)
  1. NASONEX [Suspect]
     Indication: RHINITIS ALLERGIC
     Dosage: SEE IMAGE
     Route: 045
     Dates: start: 20050501, end: 20050501
  2. NASONEX [Suspect]
     Indication: RHINITIS ALLERGIC
     Dosage: SEE IMAGE
     Route: 045
     Dates: start: 20050601, end: 20050601

REACTIONS (4)
  - DYSPHONIA [None]
  - LARYNGEAL DISORDER [None]
  - NASOPHARYNGEAL DISORDER [None]
  - PHARYNGOLARYNGEAL PAIN [None]
